FAERS Safety Report 6744167-9 (Version None)
Quarter: 2010Q2

REPORT INFORMATION
  Report Type: 
  Country: None (occurrence: None)
  Receive Date: 20100527
  Receipt Date: 20100513
  Transmission Date: 20101027
  Serious: Yes (Death, Other)
  Sender: FDA-Public Use
  Company Number: US-ALEXION-A201000597

PATIENT

DRUGS (1)
  1. SOLIRIS [Suspect]

REACTIONS (17)
  - ADHESION [None]
  - BLOODY AIRWAY DISCHARGE [None]
  - DEATH [None]
  - DIFFUSE ALVEOLAR DAMAGE [None]
  - GLOMERULOSCLEROSIS [None]
  - INTERSTITIAL LUNG DISEASE [None]
  - KIDNEY FIBROSIS [None]
  - LIVER DISORDER [None]
  - METAPLASIA [None]
  - NEPHROLITHIASIS [None]
  - OSTEOPOROSIS [None]
  - PETECHIAE [None]
  - PLEURAL ADHESION [None]
  - PULMONARY HAEMORRHAGE [None]
  - RENAL DISORDER [None]
  - THROMBOSIS [None]
  - TRACHEAL ULCER [None]
